FAERS Safety Report 7277222-8 (Version None)
Quarter: 2011Q1

REPORT INFORMATION
  Report Type: 
  Country: None (occurrence: None)
  Receive Date: 20110202
  Receipt Date: 20110202
  Transmission Date: 20110831
  Serious: Yes (Hospitalization)
  Sender: FDA-Public Use
  Company Number: None

PATIENT
  Sex: Male
  Weight: 106.5953 kg

DRUGS (1)
  1. PRADAXA [Suspect]
     Indication: CEREBROVASCULAR ACCIDENT PROPHYLAXIS
     Dosage: 150 MG BID PO
     Route: 048
     Dates: start: 20110110, end: 20110128

REACTIONS (5)
  - VERTEBRAL ARTERY THROMBOSIS [None]
  - HEMIPARESIS [None]
  - APHASIA [None]
  - VIITH NERVE PARALYSIS [None]
  - CAROTID ARTERY THROMBOSIS [None]
